FAERS Safety Report 5842201-1 (Version None)
Quarter: 2008Q3

REPORT INFORMATION
  Report Type: 
  Country: None (occurrence: None)
  Receive Date: 20080731
  Receipt Date: 20080516
  Transmission Date: 20090109
  Serious: No
  Sender: FDA-Public Use
  Company Number: US200805003356

PATIENT
  Sex: Male

DRUGS (3)
  1. BYETTA [Suspect]
     Dosage: SUBCUTANEOUS
     Route: 058
  2. SYMLIN [Concomitant]
  3. EXENATIDE [Concomitant]

REACTIONS (1)
  - DRUG DISPENSING ERROR [None]
